FAERS Safety Report 7631221-2 (Version None)
Quarter: 2011Q3

REPORT INFORMATION
  Report Type: 
  Country: None (occurrence: None)
  Receive Date: 20110715
  Receipt Date: 20110630
  Transmission Date: 20111222
  Serious: Yes (Hospitalization, Disabling, Other)
  Sender: FDA-Public Use
  Company Number: 2010MA001018

PATIENT
  Sex: Male

DRUGS (34)
  1. DONNATAL [Concomitant]
  2. PREVPAC [Concomitant]
  3. DARVOCET [Concomitant]
  4. MOBIC [Concomitant]
  5. NEURONTIN [Concomitant]
  6. TRAZODONE HCL [Concomitant]
  7. NEXIUM [Concomitant]
  8. METOCLOPRAMIDE [Suspect]
     Dosage: 50 MG
     Dates: start: 20070101, end: 20090101
  9. ZYPREXA [Concomitant]
  10. XANAX [Concomitant]
  11. ZOCOR [Concomitant]
  12. GEMFIBROZIL [Concomitant]
  13. CELEXA [Concomitant]
  14. CARAFATE [Concomitant]
  15. LORCET-HD [Concomitant]
  16. PROPOXYPHENE HYDROCHLORIDE [Concomitant]
  17. DIAZEPAM [Concomitant]
  18. FIORINAL [Concomitant]
  19. IMITREX [Concomitant]
  20. FIORICET [Concomitant]
  21. BACLOFEN [Concomitant]
  22. LOVAZA [Concomitant]
  23. AMBIEN [Concomitant]
  24. SIMVASTATIN [Concomitant]
  25. HYDROCODONE BITARTRATE [Concomitant]
  26. ROXICODONE [Concomitant]
  27. CLONIDINE [Concomitant]
  28. BENTYL [Concomitant]
  29. OXYCONTIN [Concomitant]
  30. PRILOSEC [Concomitant]
  31. ZANTAC [Concomitant]
  32. HYDROCHLOROTHIAZIDE [Concomitant]
  33. CATAFLAM [Concomitant]
  34. ELAVIL [Concomitant]

REACTIONS (15)
  - MENTAL DISORDER [None]
  - AGITATION [None]
  - EXTRAPYRAMIDAL DISORDER [None]
  - JOINT DISLOCATION [None]
  - QUALITY OF LIFE DECREASED [None]
  - BLOOD PRESSURE INCREASED [None]
  - TARDIVE DYSKINESIA [None]
  - BONE GRAFT [None]
  - CHILLS [None]
  - NERVOUS SYSTEM DISORDER [None]
  - PAIN [None]
  - MOVEMENT DISORDER [None]
  - MULTIPLE INJURIES [None]
  - DEFORMITY [None]
  - ECONOMIC PROBLEM [None]
